FAERS Safety Report 8525645-9 (Version None)
Quarter: 2012Q3

REPORT INFORMATION
  Report Type: 
  Country: None (occurrence: None)
  Receive Date: 20120720
  Receipt Date: 20120710
  Transmission Date: 20120928
  Serious: No
  Sender: FDA-Public Use
  Company Number: US-009507513-1207USA002870

PATIENT

DRUGS (3)
  1. METFORMIN HCL [Concomitant]
  2. JANUVIA [Suspect]
     Indication: DIABETES MELLITUS
     Dosage: 100 MG, QD
     Route: 048
  3. GLYBURIDE [Concomitant]

REACTIONS (1)
  - YELLOW SKIN [None]
